FAERS Safety Report 5316350-0 (Version None)
Quarter: 2007Q2

REPORT INFORMATION
  Report Type: 
  Country: None (occurrence: None)
  Receive Date: 20070430
  Receipt Date: 20070413
  Transmission Date: 20071010
  Serious: Yes (Other)
  Sender: FDA-Public Use
  Company Number: T200600906

PATIENT
  Age: 62 Year
  Sex: Male

DRUGS (4)
  1. OPTIMARK IN GLASS VIALS (GADOVERSETAMIDE) INJECTION [Suspect]
     Indication: ANGIOGRAM
     Dosage: SINGLE; INTRAVENOUS, SINGLE
     Route: 042
     Dates: start: 20050723, end: 20050723
  2. OPTIMARK IN GLASS VIALS (GADOVERSETAMIDE) INJECTION [Suspect]
     Indication: NUCLEAR MAGNETIC RESONANCE IMAGING
     Dosage: SINGLE; INTRAVENOUS, SINGLE
     Route: 042
     Dates: start: 20050723, end: 20050723
  3. OPTIMARK IN GLASS VIALS (GADOVERSETAMIDE) INJECTION [Suspect]
     Indication: ANGIOGRAM
     Dosage: SINGLE; INTRAVENOUS, SINGLE
     Route: 042
     Dates: start: 20050725, end: 20050725
  4. OPTIMARK IN GLASS VIALS (GADOVERSETAMIDE) INJECTION [Suspect]
     Indication: NUCLEAR MAGNETIC RESONANCE IMAGING
     Dosage: SINGLE; INTRAVENOUS, SINGLE
     Route: 042
     Dates: start: 20050725, end: 20050725

REACTIONS (4)
  - ARTERIAL STENOSIS [None]
  - NEPHROGENIC FIBROSING DERMOPATHY [None]
  - OSTEOMYELITIS [None]
  - PERITONEAL DIALYSIS [None]
